FAERS Safety Report 7826737-X (Version None)
Quarter: 2011Q4

REPORT INFORMATION
  Report Type: 
  Country: None (occurrence: None)
  Receive Date: 20111020
  Receipt Date: 20111006
  Transmission Date: 20120403
  Serious: Yes (Life-Threatening, Other)
  Sender: FDA-Public Use
  Company Number: GB-MYLANLABS-2011S1020777

PATIENT
  Age: 25 Year
  Sex: Female

DRUGS (5)
  1. VERAPAMIL [Concomitant]
     Indication: SUPRAVENTRICULAR TACHYCARDIA
     Route: 048
  2. PREDNISOLONE [Concomitant]
     Indication: ASTHMA
     Route: 048
     Dates: start: 20110919, end: 20110920
  3. MONTELUKAST SODIUM [Concomitant]
     Indication: ASTHMA
     Route: 048
     Dates: end: 20110922
  4. LEVOFLOXACIN [Suspect]
     Indication: CELLULITIS
     Route: 048
     Dates: start: 20110919, end: 20110922
  5. FLECAINIDE ACETATE [Concomitant]
     Indication: SUPRAVENTRICULAR TACHYCARDIA
     Route: 048

REACTIONS (3)
  - VOMITING [None]
  - GASTRITIS EROSIVE [None]
  - HAEMATEMESIS [None]
